FAERS Safety Report 4465137-X (Version None)
Quarter: 2004Q3

REPORT INFORMATION
  Report Type: 
  Country: None (occurrence: None)
  Receive Date: 20040928
  Receipt Date: 20040928
  Transmission Date: 20050211
  Serious: Yes (Hospitalization)
  Sender: FDA-Public Use
  Company Number: None

PATIENT
  Age: 85 Year
  Sex: Male
  Weight: 86.8 kg

DRUGS (4)
  1. GATIFLOXACIN [Suspect]
     Indication: URINARY TRACT INFECTION
     Dosage: 200 MG DAILY ORAL
     Route: 048
     Dates: start: 20040602, end: 20040605
  2. LISINOPRIL [Suspect]
     Indication: HYPERTENSION
     Dosage: 10 MG DAILY ORAL
     Route: 048
     Dates: start: 20040527, end: 20040605
  3. DOXAZOSIN [Concomitant]
  4. MECLIZINE [Concomitant]

REACTIONS (2)
  - HYPOAESTHESIA [None]
  - OEDEMA PERIPHERAL [None]
